FAERS Safety Report 6376302-9 (Version None)
Quarter: 2009Q3

REPORT INFORMATION
  Report Type: 
  Country: None (occurrence: None)
  Receive Date: 20090923
  Receipt Date: 20090923
  Transmission Date: 20100115
  Serious: No
  Sender: FDA-Public Use
  Company Number: None

PATIENT
  Age: 48 Year
  Sex: Female

DRUGS (2)
  1. MIDAZOLAM HCL [Suspect]
     Indication: SEDATION
     Dosage: MIDOZOLAM 2MG/2ML IV 6MG
     Route: 042
     Dates: start: 20090918
  2. FENTANYL [Suspect]
     Indication: SEDATION
     Dosage: FENTANYL 50MCG/ML IV 300MCG
     Route: 042
     Dates: start: 20090918

REACTIONS (1)
  - THERAPEUTIC RESPONSE DECREASED [None]
